FAERS Safety Report 14099750 (Version 3)
Quarter: 2017Q4

REPORT INFORMATION
  Report Type: Report from Study
  Country: US (occurrence: US)
  Receive Date: 20171017
  Receipt Date: 20171101
  Transmission Date: 20180321
  Serious: Yes (Other)
  Sender: FDA-Public Use
  Company Number: US-GILEAD-2017-0299238

PATIENT
  Age: 57 Year
  Sex: Female

DRUGS (4)
  1. AMBRISENTAN [Suspect]
     Active Substance: AMBRISENTAN
     Indication: PRODUCT USED FOR UNKNOWN INDICATION
     Dosage: 10 MG, QD
     Route: 065
     Dates: start: 20170824
  2. COUMADIN [Concomitant]
     Active Substance: WARFARIN SODIUM
  3. VENTAVIS [Concomitant]
     Active Substance: ILOPROST
  4. ADEMPAS [Concomitant]
     Active Substance: RIOCIGUAT

REACTIONS (2)
  - Pulmonary hypertension [Not Recovered/Not Resolved]
  - Dyspepsia [Recovering/Resolving]
